FAERS Safety Report 23641054 (Version 1)
Quarter: 2024Q1

REPORT INFORMATION
  Report Type: Report from Study
  Country: US (occurrence: US)
  Receive Date: 20240318
  Receipt Date: 20240318
  Transmission Date: 20240410
  Serious: No
  Sender: FDA-Public Use
  Company Number: US-ACADIA PHARMACEUTICALS INC.-ACA-2024-PIM-000897

PATIENT
  Age: 65 Year
  Sex: Male

DRUGS (16)
  1. NUPLAZID [Suspect]
     Active Substance: PIMAVANSERIN TARTRATE
     Indication: Parkinson^s disease
     Dosage: 34 MILLIGRAM, QD
     Route: 048
     Dates: start: 20240124
  2. ALFUZOSIN [Concomitant]
     Active Substance: ALFUZOSIN
  3. BACLOFEN [Concomitant]
     Active Substance: BACLOFEN
  4. CARBIDOPA LEVODOPA [Concomitant]
     Active Substance: CARBIDOPA\LEVODOPA
  5. CLOPIDOGREL [Concomitant]
     Active Substance: CLOPIDOGREL BISULFATE
  6. DONEPEZIL [Concomitant]
     Active Substance: DONEPEZIL
  7. FUROSEMIDE [Concomitant]
     Active Substance: FUROSEMIDE
  8. ISOSORBIDE [Concomitant]
     Active Substance: ISOSORBIDE
  9. LOSARTAN [Concomitant]
     Active Substance: LOSARTAN
  10. MELOXICAM [Concomitant]
     Active Substance: MELOXICAM
  11. METOPROLOL [Concomitant]
     Active Substance: METOPROLOL
  12. NITROGLYCERIN [Concomitant]
     Active Substance: NITROGLYCERIN
  13. ROPINIROLE [Concomitant]
     Active Substance: ROPINIROLE
  14. SIMVASTATIN [Concomitant]
     Active Substance: SIMVASTATIN
  15. TADALAFIL [Concomitant]
     Active Substance: TADALAFIL
  16. TESTOSTERONE [Concomitant]
     Active Substance: TESTOSTERONE

REACTIONS (1)
  - Mobility decreased [Recovered/Resolved]

NARRATIVE: CASE EVENT DATE: 20240128
